FAERS Safety Report 20349305 (Version 4)
Quarter: 2022Q2

REPORT INFORMATION
  Report Type: Spontaneous
  Country: BR (occurrence: None)
  Receive Date: 20220119
  Receipt Date: 20220524
  Transmission Date: 20220721
  Serious: Yes (Death, Other)
  Sender: FDA-Public Use
  Company Number: BR-ROCHE-3004694

PATIENT
  Age: 56 Year
  Sex: Male
  Weight: 81.5 kg

DRUGS (1)
  1. RIVOTRIL [Suspect]
     Active Substance: CLONAZEPAM
     Indication: Anxiolytic therapy
     Route: 048
     Dates: start: 20210102, end: 20210102

REACTIONS (6)
  - Acute respiratory failure [Recovered/Resolved]
  - Toxicity to various agents [Recovered/Resolved]
  - Somnolence [Recovered/Resolved]
  - Endocarditis staphylococcal [Fatal]
  - Septic shock [Fatal]
  - Respiratory failure [Fatal]

NARRATIVE: CASE EVENT DATE: 20220102
